FAERS Safety Report 15998991 (Version 2)
Quarter: 2019Q1

REPORT INFORMATION
  Report Type: Spontaneous
  Country: FR (occurrence: FR)
  Receive Date: 20190223
  Receipt Date: 20190227
  Transmission Date: 20190418
  Serious: Yes (Other)
  Sender: FDA-Public Use
  Company Number: PHHY2019FR042351

PATIENT

DRUGS (1)
  1. GILENYA [Suspect]
     Active Substance: FINGOLIMOD HYDROCHLORIDE
     Indication: MULTIPLE SCLEROSIS
     Route: 065

REACTIONS (4)
  - Aspartate aminotransferase increased [Unknown]
  - Blood bilirubin increased [Unknown]
  - Alanine aminotransferase increased [Unknown]
  - Hepatitis [Recovering/Resolving]
